FAERS Safety Report 4458009-8 (Version None)
Quarter: 2004Q3

REPORT INFORMATION
  Report Type: 
  Country: None (occurrence: None)
  Receive Date: 20040917
  Receipt Date: 20040615
  Transmission Date: 20050211
  Serious: Yes (Other)
  Sender: FDA-Public Use
  Company Number: US-JNJFOC-20040306623

PATIENT
  Age: 25 Year
  Sex: Female
  Weight: 52.1637 kg

DRUGS (3)
  1. TOPAMAX [Suspect]
     Indication: CONVULSION
     Dosage: 150 MG, IN 1 DAY, ORAL
     Route: 048
  2. TRILEPTAL [Concomitant]
  3. LEVOXYL [Concomitant]

REACTIONS (3)
  - APHASIA [None]
  - CONVULSION [None]
  - MEMORY IMPAIRMENT [None]
